FAERS Safety Report 6585660-1 (Version None)
Quarter: 2010Q1

REPORT INFORMATION
  Report Type: 
  Country: None (occurrence: None)
  Receive Date: 20100217
  Receipt Date: 20100205
  Transmission Date: 20100710
  Serious: Yes (Hospitalization)
  Sender: FDA-Public Use
  Company Number: FR-PFIZER INC-2010015268

PATIENT
  Age: 37 Year
  Sex: Female

DRUGS (5)
  1. ZOLOFT [Suspect]
     Dosage: 25 MG, 2X/DAY
     Route: 048
     Dates: start: 20091130, end: 20091209
  2. NEXIUM [Suspect]
     Dosage: 40 MG, 2X/DAY
     Route: 042
     Dates: start: 20091125, end: 20091207
  3. RISPERDAL [Suspect]
     Dosage: 2 MG, 2X/DAY
     Route: 048
     Dates: start: 20091204, end: 20091209
  4. METHADONE [Concomitant]
     Dosage: 20 MG
  5. AVLOCARDYL [Concomitant]
     Dosage: UNK
     Dates: start: 20091125

REACTIONS (2)
  - NEUTROPENIA [None]
  - THROMBOCYTOPENIA [None]
